FAERS Safety Report 9791388 (Version 1)
Quarter: 2014Q1

REPORT INFORMATION
  Report Type: Spontaneous
  Country: GB (occurrence: GB)
  Receive Date: 20140101
  Receipt Date: 20140101
  Transmission Date: 20141002
  Serious: Yes (Other)
  Sender: FDA-Public Use
  Company Number: GB-ASTRAZENECA-2013SE93506

PATIENT
  Age: 82 Year
  Sex: Female

DRUGS (3)
  1. TICAGRELOR [Suspect]
     Indication: ACUTE CORONARY SYNDROME
     Route: 048
     Dates: start: 201310, end: 20131208
  2. ASPIRIN [Concomitant]
  3. METHOTREXATE [Concomitant]
     Indication: RHEUMATOID ARTHRITIS

REACTIONS (1)
  - Anaemia [Unknown]
